FAERS Safety Report 4311381-1 (Version None)
Quarter: 2004Q1

REPORT INFORMATION
  Report Type: 
  Country: None (occurrence: None)
  Receive Date: 20040302
  Receipt Date: 20040121
  Transmission Date: 20041129
  Serious: No
  Sender: FDA-Public Use
  Company Number: 200327265BWH

PATIENT
  Age: 65 Year
  Sex: Male

DRUGS (6)
  1. LEVITRA [Suspect]
     Indication: ERECTILE DYSFUNCTION
     Dosage: 10 MG, ONCE, ORAL
     Route: 048
     Dates: start: 20031028
  2. VITAMIN C [Concomitant]
  3. GARLIC [Concomitant]
  4. MULTI-VITAMIN [Concomitant]
  5. POLICLISANOS [Concomitant]
  6. CALCIUM [Concomitant]

REACTIONS (2)
  - ERECTILE DYSFUNCTION [None]
  - PARAESTHESIA [None]
